FAERS Safety Report 12299512 (Version 1)
Quarter: 2016Q2

REPORT INFORMATION
  Report Type: Spontaneous
  Country: US (occurrence: US)
  Receive Date: 20160425
  Receipt Date: 20160425
  Transmission Date: 20160815
  Serious: No
  Sender: FDA-Public Use
  Company Number: US-PFIZER INC-2016191932

PATIENT
  Age: 80 Year
  Sex: Male
  Weight: 81.65 kg

DRUGS (4)
  1. MELATONIN [Suspect]
     Active Substance: MELATONIN
     Indication: SLEEP DISORDER
     Dosage: 12 MG, UNK (3MG TABLET, FOUR BEFORE BED)
     Dates: start: 201601
  2. NAPRO [Concomitant]
     Indication: ARTHRITIS
     Dosage: 400 MG, AS NEEDED(200MG TABLET, TWO TABLETS AS NEEDED)
  3. ADVIL PM [Suspect]
     Active Substance: DIPHENHYDRAMINE CITRATE\IBUPROFEN
     Indication: SLEEP DISORDER
     Dosage: 400 MG, UNK (2 200MG CAPLETS RIGHT BEFORE BED)
     Dates: start: 201601, end: 201603
  4. ADVIL PM [Suspect]
     Active Substance: DIPHENHYDRAMINE CITRATE\IBUPROFEN
     Indication: ARTHRITIS

REACTIONS (1)
  - Drug ineffective [Recovered/Resolved]

NARRATIVE: CASE EVENT DATE: 201601
